FAERS Safety Report 11233731 (Version 3)
Quarter: 2015Q3

REPORT INFORMATION
  Report Type: Report from Study
  Country: US (occurrence: US)
  Receive Date: 20150702
  Receipt Date: 20150729
  Transmission Date: 20151125
  Serious: No
  Sender: FDA-Public Use
  Company Number: PHEH2015US012664

PATIENT
  Sex: Male

DRUGS (2)
  1. GLEEVEC [Suspect]
     Active Substance: IMATINIB MESYLATE
     Indication: LIVER DISORDER
  2. GLEEVEC [Suspect]
     Active Substance: IMATINIB MESYLATE
     Indication: HYPERTHYROIDISM
     Dosage: UNK
     Route: 065

REACTIONS (7)
  - Mouth ulceration [Unknown]
  - Off label use [Unknown]
  - Skin hypopigmentation [Unknown]
  - Skin discolouration [Unknown]
  - Nasopharyngitis [Unknown]
  - Hair colour changes [Unknown]
  - Jaundice [Unknown]
